FAERS Safety Report 24572718 (Version 1)
Quarter: 2024Q4

REPORT INFORMATION
  Report Type: Spontaneous
  Country: US (occurrence: US)
  Receive Date: 20241101
  Receipt Date: 20241101
  Transmission Date: 20250115
  Serious: No
  Sender: Tarsus Pharmaceuticals
  Company Number: US-TARSUS PHARMACEUTICALS-TSP-US-2024-000360

PATIENT
  Age: 79 Year
  Sex: Female

DRUGS (6)
  1. XDEMVY [Suspect]
     Active Substance: LOTILANER
     Indication: Product used for unknown indication
     Dosage: 1 DROP, BID (IN EACH EYE)
     Route: 047
     Dates: start: 20240601, end: 202407
  2. DORZOLAMIDE [Concomitant]
     Active Substance: DORZOLAMIDE
     Indication: Product used for unknown indication
     Dosage: UNK
     Route: 065
  3. SULAR [Concomitant]
     Active Substance: NISOLDIPINE
     Indication: Blood pressure abnormal
     Dosage: UNK
     Route: 065
  4. POTASSIUM [Concomitant]
     Active Substance: POTASSIUM
     Indication: Product used for unknown indication
     Dosage: 20 MILLIGRAM
     Route: 065
  5. SYNTHROID [Concomitant]
     Active Substance: LEVOTHYROXINE SODIUM
     Indication: Product used for unknown indication
     Dosage: UNK
     Route: 065
  6. Soanza xr [Concomitant]
     Indication: Product used for unknown indication
     Dosage: 125 MILLIGRAM
     Route: 065

REACTIONS (2)
  - Therapy interrupted [Unknown]
  - Product use issue [Unknown]

NARRATIVE: CASE EVENT DATE: 20240701
